FAERS Safety Report 16656030 (Version 1)
Quarter: 2019Q3

REPORT INFORMATION
  Report Type: Spontaneous
  Country: US (occurrence: US)
  Receive Date: 20190731
  Receipt Date: 20190731
  Transmission Date: 20191004
  Serious: Yes (Hospitalization)
  Sender: FDA-Public Use
  Company Number: None

PATIENT
  Age: 76 Year
  Sex: Male

DRUGS (8)
  1. CIPROFLOXACIN TAB 500 MG [Concomitant]
     Active Substance: CIPROFLOXACIN
  2. TANDEM CAP [Concomitant]
  3. DIPHEN/ATROP TAB 2.5 MG [Concomitant]
  4. METRONIDAZOL TAB 500 MG [Concomitant]
  5. ONDANSETRON [Concomitant]
     Active Substance: ONDANSETRON
  6. TAMSULOSIN CAP 0.4 MG [Concomitant]
  7. PROCHLORPER TAB 10 MG [Concomitant]
  8. CAPECITABINE. [Suspect]
     Active Substance: CAPECITABINE
     Indication: PRODUCT USED FOR UNKNOWN INDICATION
     Route: 048
     Dates: start: 20190531

REACTIONS (1)
  - Diarrhoea [None]
